FAERS Safety Report 12719598 (Version 1)
Quarter: 2016Q3

REPORT INFORMATION
  Report Type: Spontaneous
  Country: IT (occurrence: IT)
  Receive Date: 20160907
  Receipt Date: 20160907
  Transmission Date: 20161109
  Serious: Yes (Other)
  Sender: FDA-Public Use
  Company Number: PHHY2016IT119547

PATIENT
  Age: 38 Year
  Sex: Female

DRUGS (3)
  1. IMATINIB [Suspect]
     Active Substance: IMATINIB
     Dosage: 400 MG, QD
     Route: 065
  2. IMATINIB [Suspect]
     Active Substance: IMATINIB
     Dosage: 800 MG, QD
     Route: 065
  3. IMATINIB [Suspect]
     Active Substance: IMATINIB
     Indication: GASTROINTESTINAL STROMAL TUMOUR
     Dosage: 400 MG, QD
     Route: 065

REACTIONS (5)
  - Gastrointestinal stromal tumour [Recovering/Resolving]
  - Paraganglion neoplasm [Recovering/Resolving]
  - Metastases to pelvis [Recovering/Resolving]
  - Second primary malignancy [Recovering/Resolving]
  - Malignant neoplasm progression [Recovering/Resolving]
